FAERS Safety Report 4667786-2 (Version None)
Quarter: 2005Q2

REPORT INFORMATION
  Report Type: 
  Country: None (occurrence: None)
  Receive Date: 20050520
  Receipt Date: 20050509
  Transmission Date: 20051028
  Serious: Yes (Hospitalization)
  Sender: FDA-Public Use
  Company Number: FR-GLAXOSMITHKLINE-B0381041A

PATIENT
  Age: 78 Year
  Sex: Female
  Weight: 83 kg

DRUGS (9)
  1. LAMICTAL [Suspect]
     Indication: EPILEPSY
     Route: 048
     Dates: start: 20050401, end: 20050401
  2. EZETROL [Concomitant]
     Route: 048
  3. PLAVIX [Concomitant]
     Route: 048
  4. VASTAREL [Concomitant]
     Route: 048
  5. CARDENSIEL [Concomitant]
     Route: 048
  6. LASILIX [Concomitant]
     Route: 048
  7. LEVOTHYROX [Concomitant]
     Route: 048
  8. INSULIN [Concomitant]
     Route: 042
  9. APROVEL [Concomitant]
     Route: 048

REACTIONS (9)
  - ABNORMAL BEHAVIOUR [None]
  - AGGRESSION [None]
  - APRAXIA [None]
  - BALANCE DISORDER [None]
  - COMA [None]
  - ENCEPHALOPATHY [None]
  - HYPERAMMONAEMIA [None]
  - PSYCHOMOTOR SKILLS IMPAIRED [None]
  - RENAL FAILURE [None]
